FAERS Safety Report 9282929 (Version 3)
Quarter: 2013Q3

REPORT INFORMATION
  Report Type: Spontaneous
  Country: IE (occurrence: IE)
  Receive Date: 20130510
  Receipt Date: 20130715
  Transmission Date: 20140515
  Serious: Yes (Other)
  Sender: FDA-Public Use
  Company Number: PHHY2013IE045414

PATIENT
  Age: 57 Year
  Sex: Male

DRUGS (3)
  1. SALBUTAMOL [Suspect]
     Indication: ASTHMA
     Dosage: 2 PUFFS QDS ASSUMINGLY
     Dates: start: 20121005, end: 201302
  2. NASOBEC [Concomitant]
     Dosage: 2 PUFFS INTO NOSTRILS BD
  3. SERETIDE EVOHALER [Concomitant]
     Dosage: 2 PUFFS BD

REACTIONS (2)
  - Increased upper airway secretion [Recovered/Resolved]
  - Drug ineffective [Recovered/Resolved]
